FAERS Safety Report 23503774 (Version 1)
Quarter: 2024Q1

REPORT INFORMATION
  Report Type: Spontaneous
  Country: DE (occurrence: DE)
  Receive Date: 20240209
  Receipt Date: 20240209
  Transmission Date: 20240410
  Serious: Yes (Death, Other)
  Sender: FDA-Public Use
  Company Number: DE-BoehringerIngelheim-2021-BI-101446

PATIENT
  Age: 73 Year
  Sex: Male
  Weight: 98 kg

DRUGS (2)
  1. DOCETAXEL [Suspect]
     Active Substance: DOCETAXEL\DOCETAXEL ANHYDROUS
     Indication: Non-small cell lung cancer
     Dosage: 75 MILLIGRAM/SQ. METER, ONCE A DAY(75 MG / M? BSA)
     Route: 065
     Dates: start: 20210317
  2. NINTEDANIB [Suspect]
     Active Substance: NINTEDANIB
     Indication: Non-small cell lung cancer
     Dosage: 200 MILLIGRAM, TWO TIMES A DAY(200 MG BID)
     Route: 065
     Dates: start: 20210318

REACTIONS (4)
  - Death [Fatal]
  - Diarrhoea [Not Recovered/Not Resolved]
  - Fatigue [Recovered/Resolved]
  - Stomatitis [Recovered/Resolved]

NARRATIVE: CASE EVENT DATE: 20210319
